FAERS Safety Report 15339738 (Version 1)
Quarter: 2018Q3

REPORT INFORMATION
  Report Type: Report from Study
  Country: US (occurrence: US)
  Receive Date: 20180831
  Receipt Date: 20180831
  Transmission Date: 20181010
  Serious: Yes (Other)
  Sender: FDA-Public Use
  Company Number: US-SHIRE-US201833410

PATIENT
  Sex: Female
  Weight: 84.81 kg

DRUGS (4)
  1. EPINEPHRINE. [Concomitant]
     Active Substance: EPINEPHRINE
     Indication: PRODUCT USED FOR UNKNOWN INDICATION
  2. FIRAZYR [Suspect]
     Active Substance: ICATIBANT ACETATE
     Indication: IMMUNE SYSTEM DISORDER
     Dosage: 30 MG, AS REQ^D
     Route: 058
     Dates: start: 20141007
  3. HAEGARDA [Concomitant]
     Active Substance: HUMAN C1-ESTERASE INHIBITOR
     Indication: PRODUCT USED FOR UNKNOWN INDICATION
  4. CINRYZE [Suspect]
     Active Substance: HUMAN C1-ESTERASE INHIBITOR
     Indication: IMMUNE SYSTEM DISORDER
     Dosage: 1500 IU, OTHER (EVERY 3?4 DAYS)
     Route: 042
     Dates: start: 20160722

REACTIONS (3)
  - Contusion [Unknown]
  - Prescribed overdose [Unknown]
  - Thrombosis [Unknown]
